FAERS Safety Report 14150368 (Version 2)
Quarter: 2018Q1

REPORT INFORMATION
  Report Type: Spontaneous
  Country: JP (occurrence: JP)
  Receive Date: 20171101
  Receipt Date: 20180115
  Transmission Date: 20180508
  Serious: Yes (Death, Hospitalization, Other)
  Sender: FDA-Public Use
  Company Number: JP-009507513-1710JPN003469J

PATIENT
  Age: 77 Year
  Sex: Female
  Weight: 38 kg

DRUGS (1)
  1. KEYTRUDA [Suspect]
     Active Substance: PEMBROLIZUMAB
     Indication: NON-SMALL CELL LUNG CANCER
     Dosage: 200 MG, Q3W
     Route: 041
     Dates: start: 20170505, end: 20170605

REACTIONS (5)
  - Interstitial lung disease [Not Recovered/Not Resolved]
  - Malignant neoplasm progression [Fatal]
  - Pneumonia [Not Recovered/Not Resolved]
  - Pneumonia [Recovering/Resolving]
  - Stomatitis [Not Recovered/Not Resolved]

NARRATIVE: CASE EVENT DATE: 20170522
